FAERS Safety Report 24392481 (Version 1)
Quarter: 2024Q4

REPORT INFORMATION
  Report Type: Spontaneous
  Country: US (occurrence: US)
  Receive Date: 20241003
  Receipt Date: 20241003
  Transmission Date: 20250114
  Serious: Yes (Death, Life-Threatening, Other)
  Sender: FRESENIUS KABI
  Company Number: US-FreseniusKabi-FK202414863

PATIENT
  Age: 47 Year
  Sex: Male

DRUGS (2)
  1. ROCURONIUM [Suspect]
     Active Substance: ROCURONIUM BROMIDE
     Indication: Endotracheal intubation
     Route: 042
  2. MIDAZOLAM [Concomitant]
     Active Substance: MIDAZOLAM
     Indication: Endotracheal intubation
     Route: 042

REACTIONS (1)
  - Hyperthermia malignant [Fatal]
